FAERS Safety Report 15095401 (Version 1)
Quarter: 2018Q3

REPORT INFORMATION
  Report Type: Spontaneous
  Country: FR (occurrence: FR)
  Receive Date: 20180702
  Receipt Date: 20180702
  Transmission Date: 20181010
  Serious: Yes (Other)
  Sender: FDA-Public Use
  Company Number: FR-ACCORD-068967

PATIENT
  Age: 60 Year
  Sex: Male

DRUGS (3)
  1. FLUOROURACIL ACCORD [Suspect]
     Active Substance: FLUOROURACIL
     Indication: OESOPHAGEAL CARCINOMA
     Route: 042
     Dates: start: 20171023, end: 20171023
  2. OXALIPLATIN ACCORD [Suspect]
     Active Substance: OXALIPLATIN
     Indication: OESOPHAGEAL CARCINOMA
     Route: 042
     Dates: start: 20171023, end: 20171023
  3. LEVOFOLINATE [Suspect]
     Active Substance: LEVOLEUCOVORIN CALCIUM
     Indication: OESOPHAGEAL CARCINOMA
     Route: 042
     Dates: start: 20171023, end: 20171023

REACTIONS (3)
  - Hypokalaemia [Not Recovered/Not Resolved]
  - Off label use [Unknown]
  - Hypomagnesaemia [Not Recovered/Not Resolved]

NARRATIVE: CASE EVENT DATE: 2017
